FAERS Safety Report 13107186 (Version 1)
Quarter: 2017Q1

REPORT INFORMATION
  Report Type: Spontaneous
  Country: GB (occurrence: GB)
  Receive Date: 20170112
  Receipt Date: 20170112
  Transmission Date: 20170428
  Serious: Yes (Other)
  Sender: FDA-Public Use
  Company Number: GB-CONCORDIA PHARMACEUTICALS INC.-GSH201701-000267

PATIENT
  Age: 79 Year
  Sex: Male

DRUGS (24)
  1. GENTAMICIN. [Concomitant]
     Active Substance: GENTAMICIN
  2. ORAMORPH [Concomitant]
     Active Substance: MORPHINE SULFATE
  3. PHOSPHATE SANDOZ EFFERVESCENT [Concomitant]
  4. SANDO-K [Concomitant]
     Active Substance: POTASSIUM BICARBONATE\POTASSIUM CHLORIDE
  5. TAMSULOSIN [Concomitant]
     Active Substance: TAMSULOSIN
  6. TINZAPARIN [Concomitant]
     Active Substance: TINZAPARIN
  7. DIGOXIN. [Suspect]
     Active Substance: DIGOXIN
     Indication: ATRIAL FIBRILLATION
     Dosage: REDUCED AND THEN WITHDRAWN
     Route: 048
     Dates: end: 20161027
  8. ACLIDINIUM [Concomitant]
     Active Substance: ACLIDINIUM BROMIDE
  9. FOSTAIR [Concomitant]
     Active Substance: BECLOMETHASONE\FORMOTEROL
  10. TERLIPRESSIN [Concomitant]
     Active Substance: TERLIPRESSIN
  11. CALCICHEW D3 [Concomitant]
     Active Substance: CALCIUM\CHOLECALCIFEROL
  12. FUROSEMIDE. [Concomitant]
     Active Substance: FUROSEMIDE
  13. TAZOCIN [Concomitant]
     Active Substance: PIPERACILLIN SODIUM\TAZOBACTAM SODIUM
  14. PARACETAMOL [Concomitant]
     Active Substance: ACETAMINOPHEN
  15. SPIRONOLACTONE. [Concomitant]
     Active Substance: SPIRONOLACTONE
  16. OMEPRAZOLE. [Concomitant]
     Active Substance: OMEPRAZOLE
  17. CO-AMOXICLAV [Concomitant]
     Active Substance: AMOXICILLIN\CLAVULANIC ACID
  18. CODEINE [Concomitant]
     Active Substance: CODEINE
  19. CHLORPHENAMINE [Concomitant]
     Active Substance: CHLORPHENIRAMINE MALEATE
  20. SALBUTAMOL [Concomitant]
     Active Substance: ALBUTEROL
  21. ATORVASTATIN [Concomitant]
     Active Substance: ATORVASTATIN
  22. CARVEDILOL. [Concomitant]
     Active Substance: CARVEDILOL
  23. FOLIC ACID. [Concomitant]
     Active Substance: FOLIC ACID
  24. LOSARTAN. [Concomitant]
     Active Substance: LOSARTAN

REACTIONS (2)
  - Toxicity to various agents [Recovered/Resolved]
  - Acute kidney injury [Unknown]
